FAERS Safety Report 9804257 (Version 1)
Quarter: 2014Q1

REPORT INFORMATION
  Report Type: Spontaneous
  Country: AU (occurrence: AU)
  Receive Date: 20140108
  Receipt Date: 20140108
  Transmission Date: 20141002
  Serious: Yes (Hospitalization)
  Sender: FDA-Public Use
  Company Number: AU-BAYER-2014-001753

PATIENT
  Sex: Male
  Weight: .91 kg

DRUGS (6)
  1. ACETYLSALICYLIC ACID({=100 MG) [Suspect]
     Route: 064
  2. NIFEDIPINE [Suspect]
     Route: 064
  3. METHYLDOPA [Concomitant]
     Route: 064
  4. LABETALOL [Concomitant]
     Route: 064
  5. ENOXAPARIN [Concomitant]
     Route: 064
  6. HYDRALAZINE [Concomitant]

REACTIONS (3)
  - Low birth weight baby [None]
  - Premature baby [None]
  - Foetal exposure during pregnancy [None]
